FAERS Safety Report 5120434-X (Version None)
Quarter: 2006Q4

REPORT INFORMATION
  Report Type: 
  Country: None (occurrence: None)
  Receive Date: 20061002
  Receipt Date: 20060921
  Transmission Date: 20070319
  Serious: Yes (Other)
  Sender: FDA-Public Use
  Company Number: JP200609001640

PATIENT
  Age: 31 Year
  Sex: Female

DRUGS (1)
  1. ZYPREXA [Suspect]
     Dosage: ORAL
     Route: 048

REACTIONS (3)
  - ASPIRATION BONE MARROW ABNORMAL [None]
  - NEUTROPHIL COUNT DECREASED [None]
  - WHITE BLOOD CELL COUNT DECREASED [None]
